FAERS Safety Report 5631806-9 (Version None)
Quarter: 2008Q1

REPORT INFORMATION
  Report Type: 
  Country: None (occurrence: None)
  Receive Date: 20080220
  Receipt Date: 20080211
  Transmission Date: 20080703
  Serious: Yes (Hospitalization)
  Sender: FDA-Public Use
  Company Number: PHBS2008CH02117

PATIENT
  Age: 37 Year
  Sex: Male

DRUGS (4)
  1. DEPAKENE [Concomitant]
     Dosage: 145+333 MG/DAY
     Dates: start: 20070721
  2. SEROQUEL [Concomitant]
     Dosage: 100 MG/DAY
     Dates: start: 20070721
  3. RITALIN [Suspect]
     Indication: ATTENTION DEFICIT/HYPERACTIVITY DISORDER
     Dosage: 10 MG, TID
     Route: 048
  4. RITALIN [Suspect]
     Dosage: UP TO 100 MG/DAY

REACTIONS (2)
  - DRUG ABUSER [None]
  - INCORRECT ROUTE OF DRUG ADMINISTRATION [None]
